FAERS Safety Report 6068966-4 (Version None)
Quarter: 2009Q1

REPORT INFORMATION
  Report Type: 
  Country: None (occurrence: None)
  Receive Date: 20090206
  Receipt Date: 20090127
  Transmission Date: 20090719
  Serious: Yes (Life-Threatening)
  Sender: FDA-Public Use
  Company Number: IT-WATSON-2009-00447

PATIENT
  Age: 60 Year
  Sex: Male

DRUGS (2)
  1. CYCLOSPORINE (WATSON LABORATORIES) [Suspect]
     Indication: PROPHYLAXIS AGAINST TRANSPLANT REJECTION
     Dosage: 175 MG, DAILY
  2. COLCHICINE (WATSON LABORATORIES) [Suspect]
     Indication: GOUT
     Dosage: 1 MG, DAILY
     Route: 048

REACTIONS (7)
  - CARDIOTOXICITY [None]
  - DRUG INTERACTION [None]
  - LIVER INJURY [None]
  - MULTI-ORGAN FAILURE [None]
  - NEUTROPENIA [None]
  - POLYNEUROPATHY [None]
  - RHABDOMYOLYSIS [None]
